FAERS Safety Report 5760478-8 (Version None)
Quarter: 2008Q2

REPORT INFORMATION
  Report Type: 
  Country: None (occurrence: None)
  Receive Date: 20080605
  Receipt Date: 20080529
  Transmission Date: 20081010
  Serious: Yes (Other)
  Sender: FDA-Public Use
  Company Number: US-PFIZER INC-2008045936

PATIENT
  Sex: Female
  Weight: 63.636 kg

DRUGS (10)
  1. LIPITOR [Suspect]
     Indication: BLOOD CHOLESTEROL INCREASED
     Dates: start: 20070901, end: 20080301
  2. SOTALOL HCL [Concomitant]
  3. PRIMIDONE [Concomitant]
  4. WARFARIN SODIUM [Concomitant]
  5. LORAZEPAM [Concomitant]
  6. LEVOTHROID [Concomitant]
  7. GLUCOSAMINE [Concomitant]
  8. CALCIUM WITH VITAMIN D [Concomitant]
  9. CALCIUM W/MAGNESIUM [Concomitant]
  10. FLORINEF [Concomitant]

REACTIONS (2)
  - MOBILITY DECREASED [None]
  - MYALGIA [None]
